FAERS Safety Report 5298161-8 (Version None)
Quarter: 2007Q2

REPORT INFORMATION
  Report Type: 
  Country: None (occurrence: None)
  Receive Date: 20070416
  Receipt Date: 20070403
  Transmission Date: 20071010
  Serious: Yes (Hospitalization)
  Sender: FDA-Public Use
  Company Number: US-ELI_LILLY_AND_COMPANY-US200703004539

PATIENT
  Age: 62 Year
  Sex: Male
  Weight: 84.807 kg

DRUGS (2)
  1. SOMATROPIN [Suspect]
     Indication: GROWTH HORMONE DEFICIENCY
     Dosage: 0.07 MG, DAILY (1/D)
     Dates: start: 19980328
  2. DDAVP (NEEDS NO REFRIGERATION) [Concomitant]
     Indication: DIABETES INSIPIDUS

REACTIONS (1)
  - PROSTATE CANCER [None]
